FAERS Safety Report 7777487-X (Version None)
Quarter: 2011Q3

REPORT INFORMATION
  Report Type: 
  Country: None (occurrence: None)
  Receive Date: 20110926
  Receipt Date: 20110914
  Transmission Date: 20111222
  Serious: Yes (Disabling)
  Sender: FDA-Public Use
  Company Number: CA-BAYER-2011-086368

PATIENT
  Age: 29 Year
  Sex: Male

DRUGS (2)
  1. AVELOX [Suspect]
     Dosage: 1 DF, QD
     Route: 048
  2. ADVAIR DISKUS 100/50 [Concomitant]
     Dosage: ALTERED, METERED DOSE
     Route: 065

REACTIONS (8)
  - PAIN IN JAW [None]
  - PAIN [None]
  - DYSPNOEA [None]
  - JOINT STIFFNESS [None]
  - INSOMNIA [None]
  - MUSCLE ATROPHY [None]
  - TENDON PAIN [None]
  - JOINT CREPITATION [None]
